FAERS Safety Report 4404047-0 (Version None)
Quarter: 2004Q2

REPORT INFORMATION
  Report Type: 
  Country: None (occurrence: None)
  Receive Date: 20040618
  Receipt Date: 20040315
  Transmission Date: 20050107
  Serious: No
  Sender: FDA-Public Use
  Company Number: US-JNJFOC-20040201455

PATIENT
  Age: 24 Year
  Sex: Female
  Weight: 49.8957 kg

DRUGS (1)
  1. ORTHO EVRA [Suspect]
     Indication: ACNE
     Dosage: 1 DOSE(S), 3I N 4 WEEK, TRANSDERMAL
     Route: 062
     Dates: start: 20031215

REACTIONS (2)
  - BONE PAIN [None]
  - PRURITUS [None]
